FAERS Safety Report 16081278 (Version 1)
Quarter: 2019Q1

REPORT INFORMATION
  Report Type: Spontaneous
  Country: FR (occurrence: FR)
  Receive Date: 20190316
  Receipt Date: 20190316
  Transmission Date: 20190418
  Serious: Yes (Other)
  Sender: FDA-Public Use
  Company Number: FR-ACCORD-113608

PATIENT
  Age: 54 Year
  Sex: Female

DRUGS (6)
  1. CISPLATIN. [Suspect]
     Active Substance: CISPLATIN
     Indication: CHEMOTHERAPY
     Route: 042
     Dates: start: 20180913, end: 20180913
  2. ABSTRAL [Concomitant]
     Active Substance: FENTANYL CITRATE
  3. FLAGYL [Concomitant]
     Active Substance: METRONIDAZOLE\METRONIDAZOLE HYDROCHLORIDE
  4. DOLIPRANE [Concomitant]
     Active Substance: ACETAMINOPHEN
  5. INSULIN PORCINE [Concomitant]
     Active Substance: INSULIN PORK\INSULIN PURIFIED PORK
  6. SKENAN [Concomitant]
     Active Substance: MORPHINE SULFATE
     Route: 048

REACTIONS (4)
  - Visual impairment [Recovered/Resolved]
  - Malaise [Recovered/Resolved]
  - Angioedema [Recovered/Resolved]
  - Respiratory distress [Recovered/Resolved]

NARRATIVE: CASE EVENT DATE: 20180913
